FAERS Safety Report 10205230 (Version 1)
Quarter: 2014Q2

REPORT INFORMATION
  Report Type: Report from Study
  Country: TW (occurrence: TW)
  Receive Date: 20140529
  Receipt Date: 20140529
  Transmission Date: 20141212
  Serious: Yes (Hospitalization)
  Sender: FDA-Public Use
  Company Number: TW-SA-2014SA066695

PATIENT
  Sex: Female
  Weight: 39 kg

DRUGS (6)
  1. THYMOGLOBULIN [Suspect]
     Indication: APLASTIC ANAEMIA
     Route: 065
     Dates: start: 20080416
  2. SANDIMMUN [Concomitant]
     Indication: APLASTIC ANAEMIA
     Route: 048
  3. FLUCONAZOLE [Concomitant]
     Route: 048
  4. DEFERASIROX [Concomitant]
     Dosage: FREQUENCY: QDAC
     Route: 048
  5. RANITIDINE [Concomitant]
     Route: 048
  6. MAGNESIUM OXIDE [Concomitant]
     Route: 048

REACTIONS (2)
  - Acute tonsillitis [Recovered/Resolved]
  - Febrile neutropenia [Recovered/Resolved]
